FAERS Safety Report 14065758 (Version 3)
Quarter: 2017Q4

REPORT INFORMATION
  Report Type: Spontaneous
  Country: ES (occurrence: ES)
  Receive Date: 20171009
  Receipt Date: 20171113
  Transmission Date: 20180321
  Serious: Yes (Hospitalization)
  Sender: FDA-Public Use
  Company Number: ES-JNJFOC-20171002540

PATIENT
  Sex: Female

DRUGS (5)
  1. TREVICTA [Suspect]
     Active Substance: PALIPERIDONE PALMITATE
     Indication: NERVOUSNESS
     Route: 030
     Dates: start: 201709
  2. INVEGA [Suspect]
     Active Substance: PALIPERIDONE
     Indication: PRODUCT USED FOR UNKNOWN INDICATION
     Route: 048
     Dates: start: 2014
  3. TREVICTA [Suspect]
     Active Substance: PALIPERIDONE PALMITATE
     Indication: NERVOUSNESS
     Route: 030
  4. TREVICTA [Suspect]
     Active Substance: PALIPERIDONE PALMITATE
     Indication: NERVOUSNESS
     Route: 030
  5. TREVICTA [Suspect]
     Active Substance: PALIPERIDONE PALMITATE
     Indication: NERVOUSNESS
     Route: 030
     Dates: start: 201707

REACTIONS (5)
  - Secretion discharge [Unknown]
  - Product use in unapproved indication [Unknown]
  - Off label use [Unknown]
  - Dizziness [Not Recovered/Not Resolved]
  - Hospitalisation [Unknown]
